FAERS Safety Report 8061942-1 (Version None)
Quarter: 2012Q1

REPORT INFORMATION
  Report Type: 
  Country: None (occurrence: None)
  Receive Date: 20120123
  Receipt Date: 20120111
  Transmission Date: 20120608
  Serious: Yes (Other)
  Sender: FDA-Public Use
  Company Number: US-BAYER-2010-001600

PATIENT
  Age: 33 Year
  Sex: Female
  Weight: 99.773 kg

DRUGS (4)
  1. MEPERGAN [Concomitant]
     Route: 048
  2. METHERGINE [Concomitant]
     Dosage: UNK
     Route: 048
     Dates: start: 20091118
  3. KEFLEX [Concomitant]
     Route: 048
  4. YAZ [Suspect]
     Indication: CONTRACEPTION
     Dosage: UNK
     Dates: start: 20061215

REACTIONS (2)
  - GALLBLADDER DISORDER [None]
  - CHOLELITHIASIS [None]
